FAERS Safety Report 5905709-6 (Version None)
Quarter: 2008Q4

REPORT INFORMATION
  Report Type: 
  Country: None (occurrence: None)
  Receive Date: 20081001
  Receipt Date: 20081001
  Transmission Date: 20090506
  Serious: Yes (Life-Threatening, Hospitalization)
  Sender: FDA-Public Use
  Company Number: None

PATIENT
  Age: 60 Year
  Sex: Male

DRUGS (3)
  1. LISINOPRIL [Suspect]
     Indication: DIABETIC NEPHROPATHY
     Dosage: 0.5 TAB EVERY DAY PO
     Route: 048
     Dates: start: 20070901, end: 20080719
  2. LISINOPRIL [Suspect]
     Indication: HYPERTENSION
     Dosage: 0.5 TAB EVERY DAY PO
     Route: 048
     Dates: start: 20070901, end: 20080719
  3. LISINOPRIL [Suspect]
     Indication: PROPHYLAXIS
     Dosage: 0.5 TAB EVERY DAY PO
     Route: 048
     Dates: start: 20070901, end: 20080719

REACTIONS (3)
  - ANGIOEDEMA [None]
  - DEHYDRATION [None]
  - PNEUMONIA [None]
